FAERS Safety Report 17172179 (Version 2)
Quarter: 2020Q1

REPORT INFORMATION
  Report Type: Spontaneous
  Country: US (occurrence: US)
  Receive Date: 20191218
  Receipt Date: 20200108
  Transmission Date: 20200409
  Serious: No
  Sender: FDA-Public Use
  Company Number: US-LUNDBECK-DKLU3008431

PATIENT
  Age: 10 Month
  Sex: Female

DRUGS (1)
  1. SABRIL [Suspect]
     Active Substance: VIGABATRIN
     Indication: TUBEROUS SCLEROSIS COMPLEX
     Route: 048
     Dates: start: 20190911

REACTIONS (5)
  - Aggression [Unknown]
  - Alopecia [Unknown]
  - Irritability [Unknown]
  - Decreased interest [Unknown]
  - Rash [Unknown]

NARRATIVE: CASE EVENT DATE: 201909
